FAERS Safety Report 5403910-1 (Version None)
Quarter: 2007Q3

REPORT INFORMATION
  Report Type: 
  Country: None (occurrence: None)
  Receive Date: 20070731
  Receipt Date: 20070731
  Transmission Date: 20080115
  Serious: No
  Sender: FDA-Public Use
  Company Number: None

PATIENT
  Age: 48 Year
  Sex: Male

DRUGS (2)
  1. DIPHENHYDRAMINE HCL [Suspect]
     Dosage: 6TAB ONCE PO
     Route: 048
     Dates: start: 20070728, end: 20070728
  2. ACETAMINOPHEN [Suspect]

REACTIONS (1)
  - MENTAL STATUS CHANGES [None]
